FAERS Safety Report 7451873-X (Version None)
Quarter: 2011Q2

REPORT INFORMATION
  Report Type: 
  Country: None (occurrence: None)
  Receive Date: 20110502
  Receipt Date: 20110421
  Transmission Date: 20111010
  Serious: Yes (Other)
  Sender: FDA-Public Use
  Company Number: US-ASTRAZENECA-2011SE22917

PATIENT
  Age: 63 Year
  Sex: Female

DRUGS (10)
  1. ZETIA [Concomitant]
  2. CRESTOR [Suspect]
     Route: 048
     Dates: end: 20110323
  3. DABIGATRON [Suspect]
     Dates: start: 20110309, end: 20110323
  4. CEFTIN [Suspect]
     Indication: PNEUMONIA
     Dates: start: 20110309
  5. CARDIZEM [Suspect]
     Dates: start: 20110309
  6. LASIX [Suspect]
     Dates: start: 20110309
  7. MULTAQ [Suspect]
     Indication: ATRIAL FIBRILLATION
     Route: 048
     Dates: start: 20110309, end: 20110323
  8. AMIODARONE [Concomitant]
  9. AZITHROMYCIN [Suspect]
     Indication: PNEUMONIA
     Dates: start: 20110309
  10. NEXIUM [Concomitant]

REACTIONS (8)
  - DIZZINESS [None]
  - ATRIAL FIBRILLATION [None]
  - PNEUMONIA [None]
  - LIVER FUNCTION TEST ABNORMAL [None]
  - NAUSEA [None]
  - FATIGUE [None]
  - HEPATOCELLULAR INJURY [None]
  - DIARRHOEA [None]
